FAERS Safety Report 21129513 (Version 1)
Quarter: 2022Q3

REPORT INFORMATION
  Report Type: Other
  Country: None (occurrence: GB)
  Receive Date: 20220726
  Receipt Date: 20220726
  Transmission Date: 20221026
  Serious: Yes (Life-Threatening, Hospitalization)
  Sender: FDA-Public Use
  Company Number: GB-OrBion Pharmaceuticals Private Limited-2131225

PATIENT
  Age: 47 Year
  Sex: Female

DRUGS (6)
  1. AMLODIPINE BESYLATE [Suspect]
     Active Substance: AMLODIPINE BESYLATE
     Route: 065
  2. AMITRIPTYLINE [Suspect]
     Active Substance: AMITRIPTYLINE
     Route: 065
  3. ATORVASTATIN CALCIUM [Concomitant]
     Active Substance: ATORVASTATIN CALCIUM
     Route: 065
  4. SERTRALINE [Concomitant]
     Active Substance: SERTRALINE HYDROCHLORIDE
     Route: 065
  5. OMEPRAZOLE [Concomitant]
     Active Substance: OMEPRAZOLE
     Route: 065
  6. BUTYLSCOPOLAMINE BROMIDE [Concomitant]
     Active Substance: BUTYLSCOPOLAMINE BROMIDE
     Route: 065

REACTIONS (12)
  - Cardiac arrest [Recovered/Resolved]
  - Hypothermia [Recovered/Resolved]
  - Atrioventricular block complete [Recovered/Resolved]
  - Mydriasis [Recovered/Resolved]
  - Pupil fixed [Recovered/Resolved]
  - Metabolic acidosis [Recovered/Resolved]
  - Mean arterial pressure decreased [Recovered/Resolved]
  - Anuria [Recovered/Resolved]
  - Drug level increased [Recovered/Resolved]
  - Drug level increased [Recovered/Resolved]
  - Suicidal ideation [Recovered/Resolved]
  - Toxicity to various agents [Recovered/Resolved]
